FAERS Safety Report 15470813 (Version 1)
Quarter: 2018Q4

REPORT INFORMATION
  Report Type: Spontaneous
  Country: US (occurrence: US)
  Receive Date: 20181005
  Receipt Date: 20181005
  Transmission Date: 20190205
  Serious: Yes (Death, Hospitalization, Other)
  Sender: FDA-Public Use
  Company Number: US-SUNOVION-2018SUN003822

PATIENT
  Age: 82 Year
  Sex: Female

DRUGS (1)
  1. LONHALA MAGNAIR [Suspect]
     Active Substance: GLYCOPYRROLATE
     Indication: PRODUCT USED FOR UNKNOWN INDICATION
     Dosage: 25 ?G/ 1 ML
     Route: 055
     Dates: start: 201803

REACTIONS (2)
  - Accidental death [Fatal]
  - Fall [Unknown]

NARRATIVE: CASE EVENT DATE: 20180718
